FAERS Safety Report 10213581 (Version 4)
Quarter: 2014Q2

REPORT INFORMATION
  Report Type: Spontaneous
  Country: BR (occurrence: BR)
  Receive Date: 20140603
  Receipt Date: 20140625
  Transmission Date: 20141212
  Serious: Yes (Other)
  Sender: FDA-Public Use
  Company Number: BR-SA-2014SA067665

PATIENT
  Age: 8 Year
  Sex: Female
  Weight: 24 kg

DRUGS (8)
  1. LANTUS SOLOSTAR [Suspect]
     Indication: TYPE 1 DIABETES MELLITUS
     Route: 065
     Dates: start: 201211
  2. LANTUS SOLOSTAR [Suspect]
     Indication: TYPE 1 DIABETES MELLITUS
     Route: 065
     Dates: start: 201404, end: 201404
  3. LANTUS [Suspect]
     Indication: TYPE 1 DIABETES MELLITUS
     Route: 065
     Dates: start: 201404
  4. SOLOSTAR [Concomitant]
     Indication: TYPE 1 DIABETES MELLITUS
  5. CLIKSTAR [Concomitant]
     Indication: DEVICE THERAPY
  6. NEOX [Concomitant]
     Indication: SINUSITIS
     Dosage: DOSE: 1 JET
     Route: 045
  7. NASONEX [Concomitant]
     Indication: SINUSITIS
     Dosage: DOSE: 2 JET
     Route: 045
  8. AMOXICILLIN [Concomitant]
     Route: 048
     Dates: start: 20140516

REACTIONS (5)
  - Pneumonia [Recovered/Resolved]
  - Blood glucose increased [Recovered/Resolved]
  - Drug ineffective [Unknown]
  - Injection site discolouration [Recovered/Resolved]
  - Injection site pain [Recovered/Resolved]
